FAERS Safety Report 9471425 (Version 5)
Quarter: 2014Q2

REPORT INFORMATION
  Report Type: Spontaneous
  Country: US (occurrence: US)
  Receive Date: 20130822
  Receipt Date: 20140611
  Transmission Date: 20141212
  Serious: Yes (Other)
  Sender: FDA-Public Use
  Company Number: CHPA2013US013144

PATIENT
  Age: 60 Year
  Sex: Male

DRUGS (3)
  1. EX-LAX MAX STR LAX PILLS SENNA [Suspect]
     Indication: CONSTIPATION
     Dosage: 2 DF, BID
     Route: 048
     Dates: start: 20130819, end: 20130819
  2. EX-LAX MAX STR LAX PILLS SENNA [Suspect]
     Indication: ABDOMINAL PAIN UPPER
     Dosage: UNK
  3. EX-LAX MAX STR LAX PILLS SENNA [Suspect]
     Indication: OFF LABEL USE

REACTIONS (9)
  - Constipation [Recovered/Resolved]
  - Pain [Recovered/Resolved]
  - Vomiting [Recovered/Resolved]
  - Faeces hard [Recovered/Resolved]
  - Laceration [Recovered/Resolved]
  - Nausea [Recovered/Resolved]
  - Diarrhoea [Recovered/Resolved]
  - Abdominal pain upper [Recovered/Resolved]
  - Drug ineffective [Unknown]
